FAERS Safety Report 8082618-0 (Version None)
Quarter: 2012Q1

REPORT INFORMATION
  Report Type: 
  Country: None (occurrence: None)
  Receive Date: 20120127
  Receipt Date: 20110223
  Transmission Date: 20120608
  Serious: No
  Sender: FDA-Public Use
  Company Number: US-ABBOTT-11P-163-0707253-00

PATIENT
  Sex: Male

DRUGS (17)
  1. HUMIRA [Suspect]
     Indication: PSORIATIC ARTHROPATHY
     Route: 058
  2. POTASSIUM CHLORIDE [Concomitant]
     Indication: HYPERTENSION
     Dosage: ER TAB DAILY
  3. VALACYCLOVIR [Concomitant]
     Indication: FUNGAL INFECTION
  4. LISINOPRIL [Concomitant]
     Indication: HYPERTENSION
  5. LUNESTA [Concomitant]
     Indication: INSOMNIA
     Dosage: AT BEDTIME
  6. VERAPAMIL [Concomitant]
     Indication: PRODUCT USED FOR UNKNOWN INDICATION
  7. LIPITOR [Concomitant]
     Indication: HYPERCHOLESTEROLAEMIA
  8. FOLIC ACID [Concomitant]
     Indication: PRODUCT USED FOR UNKNOWN INDICATION
  9. HYDROCHLOROTHIAZIDE [Concomitant]
     Indication: PRODUCT USED FOR UNKNOWN INDICATION
  10. LOPROX [Concomitant]
     Indication: FUNGAL INFECTION
  11. HYDROTHIAZIDE [Concomitant]
     Indication: HYPERTENSION
  12. VALACYCLOVIR [Concomitant]
     Indication: TINEA PEDIS
  13. FISH OIL [Concomitant]
     Indication: PRODUCT USED FOR UNKNOWN INDICATION
  14. VITAMIN D [Concomitant]
     Indication: PRODUCT USED FOR UNKNOWN INDICATION
  15. TYLENOL W/ CODEINE NO. 3 [Concomitant]
     Indication: PAIN
     Dosage: 1-2 TABLETS DAILY
  16. HYDRALAZINE HCL [Concomitant]
     Indication: HYPERTENSION
  17. DEPROLINE/DOVENOX [Concomitant]
     Indication: PSORIASIS

REACTIONS (3)
  - ONYCHOMYCOSIS [None]
  - TINEA PEDIS [None]
  - INJECTION SITE PAIN [None]
